FAERS Safety Report 7097357-2 (Version None)
Quarter: 2010Q4

REPORT INFORMATION
  Report Type: 
  Country: None (occurrence: None)
  Receive Date: 20101111
  Receipt Date: 20101110
  Transmission Date: 20110411
  Serious: Yes (Other)
  Sender: FDA-Public Use
  Company Number: FI-PFIZER INC-2010145317

PATIENT
  Age: 33 Year
  Sex: Male

DRUGS (1)
  1. XANOR DEPOT [Suspect]
     Indication: SEDATIVE THERAPY

REACTIONS (8)
  - AGGRESSION [None]
  - BLOOD PRESSURE INCREASED [None]
  - FEELING DRUNK [None]
  - HOMICIDAL IDEATION [None]
  - INSOMNIA [None]
  - LOSS OF CONTROL OF LEGS [None]
  - POOR PERIPHERAL CIRCULATION [None]
  - PRIAPISM [None]
